FAERS Safety Report 5071483-1 (Version None)
Quarter: 2006Q3

REPORT INFORMATION
  Report Type: 
  Country: None (occurrence: None)
  Receive Date: 20060804
  Receipt Date: 20060509
  Transmission Date: 20061208
  Serious: Yes (Life-Threatening, Hospitalization, Other)
  Sender: FDA-Public Use
  Company Number: DE-GLAXOSMITHKLINE-D0049667A

PATIENT
  Age: 62 Year
  Sex: Female
  Weight: 66 kg

DRUGS (3)
  1. VIANI 50-250 DISKUS [Suspect]
     Indication: OBSTRUCTIVE AIRWAYS DISORDER
     Dosage: 1BLS TWICE PER DAY
     Route: 055
     Dates: start: 20060308, end: 20060309
  2. SPIRIVA [Suspect]
     Route: 065
  3. L-THYROXINE [Concomitant]
     Indication: AUTOIMMUNE THYROIDITIS
     Dosage: 100MG IN THE MORNING
     Route: 048
     Dates: start: 20050801

REACTIONS (15)
  - ABDOMINAL PAIN UPPER [None]
  - ASTHENIA [None]
  - CHROMATURIA [None]
  - DYSURIA [None]
  - EPSTEIN-BARR VIRUS INFECTION [None]
  - ESCHERICHIA URINARY TRACT INFECTION [None]
  - HAEMATURIA [None]
  - HEPATIC CYST [None]
  - HEPATIC FAILURE [None]
  - HEPATITIS [None]
  - JAUNDICE [None]
  - MALAISE [None]
  - NAUSEA [None]
  - PRURITUS [None]
  - RESTLESSNESS [None]
